FAERS Safety Report 9684340 (Version 2)
Quarter: 2014Q2

REPORT INFORMATION
  Report Type: Report from Study
  Country: MX (occurrence: MX)
  Receive Date: 20131112
  Receipt Date: 20140630
  Transmission Date: 20141212
  Serious: Yes (Other)
  Sender: FDA-Public Use
  Company Number: PHHY2013MX128806

PATIENT
  Age: 81 Year
  Sex: Female

DRUGS (3)
  1. ACLASTA [Suspect]
     Indication: OSTEOPOROSIS
     Dosage: 5 MG/100ML, ANNUALLY
     Route: 042
     Dates: start: 2011
  2. TEBONIN [Concomitant]
     Indication: ARRHYTHMIA
     Dosage: 2 TABLETS DAILY
     Dates: start: 201305
  3. NORFENON [Concomitant]
     Indication: ARRHYTHMIA
     Dosage: 1 TABLET DAILY
     Dates: start: 201305

REACTIONS (12)
  - Cerebral infarction [Not Recovered/Not Resolved]
  - Disorientation [Unknown]
  - Speech disorder [Unknown]
  - Cognitive disorder [Unknown]
  - Gait disturbance [Unknown]
  - Balance disorder [Unknown]
  - Confusional state [Unknown]
  - Dysphagia [Unknown]
  - Dizziness [Unknown]
  - Headache [Unknown]
  - Fall [Unknown]
  - Cardiovascular disorder [Unknown]
